FAERS Safety Report 5671355-5 (Version None)
Quarter: 2008Q1

REPORT INFORMATION
  Report Type: 
  Country: None (occurrence: None)
  Receive Date: 20080312
  Receipt Date: 20080215
  Transmission Date: 20080703
  Serious: Yes (Hospitalization)
  Sender: FDA-Public Use
  Company Number: PHHY2008JP00559

PATIENT
  Age: 81 Year
  Sex: Female

DRUGS (2)
  1. LAMISIL [Suspect]
     Indication: FUNGAL INFECTION
     Dosage: TOPICAL
     Route: 061
     Dates: start: 20071219, end: 20071226
  2. EURAX [Suspect]
     Indication: FUNGAL INFECTION
     Dosage: TOPICAL
     Route: 061
     Dates: start: 20071219, end: 20071226

REACTIONS (3)
  - DERMATITIS CONTACT [None]
  - LYMPHOCYTE STIMULATION TEST POSITIVE [None]
  - SKIN TEST POSITIVE [None]
